FAERS Safety Report 7789615-0 (Version None)
Quarter: 2011Q3

REPORT INFORMATION
  Report Type: 
  Country: None (occurrence: None)
  Receive Date: 20110930
  Receipt Date: 20110915
  Transmission Date: 20111222
  Serious: Yes (Death, Other)
  Sender: FDA-Public Use
  Company Number: JP-WATSON-2011-14549

PATIENT
  Age: 74 Year
  Sex: Male

DRUGS (3)
  1. OXALIPLATIN [Suspect]
     Dosage: 63 MG/M2, UNK
     Route: 065
  2. OXALIPLATIN [Suspect]
     Indication: RECTAL CANCER METASTATIC
     Dosage: 85 MG/M2, UNK
     Route: 065
  3. FLUOROURACIL [Suspect]
     Indication: RECTAL CANCER METASTATIC
     Dosage: BOLUS DOSE FOLLOWED BY 46-HR INFUSION REPEATED Q 2 WEEKS
     Route: 042

REACTIONS (6)
  - THROMBOCYTOPENIA [None]
  - NEUTROPENIA [None]
  - INTERSTITIAL LUNG DISEASE [None]
  - RESPIRATORY FAILURE [None]
  - NEUROPATHY PERIPHERAL [None]
  - STOMATITIS [None]
